FAERS Safety Report 5410049-8 (Version None)
Quarter: 2007Q3

REPORT INFORMATION
  Report Type: 
  Country: None (occurrence: None)
  Receive Date: 20070809
  Receipt Date: 20070726
  Transmission Date: 20080115
  Serious: Yes (Other)
  Sender: FDA-Public Use
  Company Number: BR-PFIZER INC-2007064925

PATIENT
  Sex: Female

DRUGS (1)
  1. VIRACEPT [Suspect]
     Indication: HIV INFECTION
     Dosage: DAILY DOSE:250MG
     Route: 048

REACTIONS (1)
  - ABORTION SPONTANEOUS [None]
